FAERS Safety Report 24931809 (Version 1)
Quarter: 2025Q1

REPORT INFORMATION
  Report Type: Report from Study
  Country: US (occurrence: US)
  Receive Date: 20250205
  Receipt Date: 20250205
  Transmission Date: 20250408
  Serious: No
  Sender: EXELIXIS
  Company Number: US-EXELIXIS-CABO-24078870

PATIENT
  Sex: Male

DRUGS (5)
  1. CABOMETYX [Suspect]
     Active Substance: CABOZANTINIB S-MALATE
     Indication: Chondrosarcoma
  2. GABAPENTIN [Concomitant]
     Active Substance: GABAPENTIN
  3. LAMICTAL [Concomitant]
     Active Substance: LAMOTRIGINE
  4. OLANZAPINE [Concomitant]
     Active Substance: OLANZAPINE
  5. OXYCODONE [Concomitant]
     Active Substance: OXYCODONE

REACTIONS (1)
  - Off label use [Unknown]
